FAERS Safety Report 7083010-8 (Version None)
Quarter: 2010Q4

REPORT INFORMATION
  Report Type: 
  Country: None (occurrence: None)
  Receive Date: 20101104
  Receipt Date: 20101020
  Transmission Date: 20110411
  Serious: Yes (Other)
  Sender: FDA-Public Use
  Company Number: US-BAYER-201032842NA

PATIENT
  Age: 26 Year
  Sex: Female
  Weight: 96 kg

DRUGS (1)
  1. MIRENA [Suspect]
     Indication: CONTRACEPTION
     Dosage: FREQUENCY: CONTINUOUS
     Route: 015
     Dates: start: 20080904, end: 20091124

REACTIONS (12)
  - ALOPECIA [None]
  - BALANCE DISORDER [None]
  - DIZZINESS [None]
  - HEADACHE [None]
  - MOOD SWINGS [None]
  - NAUSEA [None]
  - PALPITATIONS [None]
  - PELVIC INFLAMMATORY DISEASE [None]
  - POST PROCEDURAL HAEMORRHAGE [None]
  - VOMITING [None]
  - VULVOVAGINITIS TRICHOMONAL [None]
  - WEIGHT INCREASED [None]
